FAERS Safety Report 5420909-X (Version None)
Quarter: 2007Q3

REPORT INFORMATION
  Report Type: 
  Country: None (occurrence: None)
  Receive Date: 20070821
  Receipt Date: 20070810
  Transmission Date: 20080115
  Serious: Yes (Life-Threatening, Hospitalization, Disabling)
  Sender: FDA-Public Use
  Company Number: US-ROCHE-511233

PATIENT
  Age: 66 Year
  Sex: Female

DRUGS (3)
  1. CAPECITABINE [Suspect]
     Indication: COLON CANCER
     Route: 048
     Dates: start: 20070531
  2. BEVACIZUMAB [Suspect]
     Indication: COLON CANCER
     Dosage: FORM: POWDER AND SOLVENT FOR SOLUTION FOR INFUSION.
     Route: 042
     Dates: start: 20070531
  3. OXALIPLATIN [Suspect]
     Indication: COLON CANCER
     Route: 042
     Dates: start: 20070531

REACTIONS (1)
  - GASTROINTESTINAL PERFORATION [None]
